FAERS Safety Report 16057724 (Version 1)
Quarter: 2019Q1

REPORT INFORMATION
  Report Type: Spontaneous
  Country: US (occurrence: US)
  Receive Date: 20190311
  Receipt Date: 20190311
  Transmission Date: 20190418
  Serious: Yes (Other)
  Sender: FDA-Public Use
  Company Number: US-COOPERSURGICAL, INC.-US-2019CPS000571

PATIENT

DRUGS (1)
  1. PARAGARD T 380A [Suspect]
     Active Substance: COPPER
     Indication: PRODUCT USED FOR UNKNOWN INDICATION
     Dosage: UNK
     Route: 015
     Dates: end: 2017

REACTIONS (21)
  - Hyperphagia [Unknown]
  - Mood swings [Unknown]
  - Alopecia [Unknown]
  - Toxicity to various agents [Unknown]
  - Peripheral coldness [Unknown]
  - Dry skin [Unknown]
  - Palpitations [Unknown]
  - Migraine [Unknown]
  - Depression [Unknown]
  - Premenstrual syndrome [Unknown]
  - Abdominal distension [Unknown]
  - Disturbance in attention [Unknown]
  - Memory impairment [Unknown]
  - Anxiety [Unknown]
  - Pulmonary hypertension [Unknown]
  - Blood copper increased [Unknown]
  - Feeling abnormal [Unknown]
  - Fatigue [Unknown]
  - Hypothyroidism [Unknown]
  - Constipation [Unknown]
  - Device issue [Recovered/Resolved]

NARRATIVE: CASE EVENT DATE: 2017
